FAERS Safety Report 4786795-6 (Version None)
Quarter: 2005Q3

REPORT INFORMATION
  Report Type: 
  Country: None (occurrence: None)
  Receive Date: 20050930
  Receipt Date: 20050919
  Transmission Date: 20060218
  Serious: Yes (Death, Hospitalization)
  Sender: FDA-Public Use
  Company Number: 2005US000942

PATIENT
  Sex: Male

DRUGS (5)
  1. AMBISOME [Suspect]
     Indication: ASPERGILLOSIS
     Dosage: SEE IMAGE
     Route: 042
     Dates: start: 20050520, end: 20050525
  2. AMBISOME [Suspect]
     Indication: ASPERGILLOSIS
     Dosage: SEE IMAGE
     Route: 042
     Dates: start: 20050525, end: 20050621
  3. CASPOFUNGIN (CASPOFUNGIN) [Concomitant]
  4. VORICONAZOLE (VORICONAZOLE) [Concomitant]
  5. FLUCONAZOLE [Concomitant]

REACTIONS (2)
  - CARDIOPULMONARY FAILURE [None]
  - PNEUMONITIS [None]
